FAERS Safety Report 16370609 (Version 1)
Quarter: 2019Q2

REPORT INFORMATION
  Report Type: Spontaneous
  Country: US (occurrence: US)
  Receive Date: 20190530
  Receipt Date: 20190530
  Transmission Date: 20190711
  Serious: No
  Sender: FDA-Public Use
  Company Number: US-HIKMA PHARMACEUTICALS USA INC.-US-H14001-19-00013

PATIENT
  Sex: Female

DRUGS (2)
  1. ALOSETRON [Suspect]
     Active Substance: ALOSETRON
     Indication: ROTAVIRUS INFECTION
     Route: 065
  2. ALOSETRON [Suspect]
     Active Substance: ALOSETRON
     Route: 065

REACTIONS (1)
  - Drug ineffective [Unknown]
